FAERS Safety Report 10038442 (Version 1)
Quarter: 2014Q1

REPORT INFORMATION
  Report Type: Spontaneous
  Country: US (occurrence: US)
  Receive Date: 20140326
  Receipt Date: 20140326
  Transmission Date: 20141002
  Serious: Yes (Death, Other)
  Sender: FDA-Public Use
  Company Number: US-FRI-1000064837

PATIENT
  Age: 75 Year
  Sex: Female

DRUGS (3)
  1. FETZIMA [Suspect]
     Indication: DEPRESSION
     Dosage: 20 MG
     Route: 048
     Dates: start: 20140121, end: 20140130
  2. FETZIMA [Suspect]
     Indication: DEPRESSION
     Dosage: 40 MG
     Route: 048
     Dates: start: 20140131, end: 20140217
  3. FETZIMA [Suspect]
     Indication: DEPRESSION
     Dosage: 20 MG
     Route: 048
     Dates: start: 20140218, end: 20140220

REACTIONS (3)
  - Death [Fatal]
  - Fall [Recovered/Resolved]
  - Atrial fibrillation [Unknown]
